FAERS Safety Report 8762623 (Version 1)
Quarter: 2012Q4

REPORT INFORMATION
  Report Type: 
  Country: US (occurrence: US)
  Receive Date: 20120831
  Receipt Date: 20120831
  Transmission Date: 20130627
  Serious: No
  Sender: FDA-Public Use
  Company Number: US-TEVA-355595USA

PATIENT
  Sex: Male
  Weight: 66.28 kg

DRUGS (1)
  1. AZILECT [Suspect]

REACTIONS (1)
  - Sleep disorder [Unknown]
